FAERS Safety Report 10443994 (Version 2)
Quarter: 2014Q3

REPORT INFORMATION
  Report Type: Spontaneous
  Country: US (occurrence: US)
  Receive Date: 20140910
  Receipt Date: 20140910
  Transmission Date: 20150326
  Serious: No
  Sender: FDA-Public Use
  Company Number: US-TARO-2014TAR00076

PATIENT
  Sex: Male
  Weight: 70.3 kg

DRUGS (4)
  1. WARFARIN SODIUM TABLETS USP 3MG [Suspect]
     Active Substance: WARFARIN SODIUM
     Dosage: 1.5 MG, 1X/WEEK
     Route: 048
     Dates: start: 201405
  2. NEXIUM [Concomitant]
     Active Substance: ESOMEPRAZOLE MAGNESIUM
     Dosage: 20 MG, 1X/DAY
     Dates: start: 2013, end: 201406
  3. WARFARIN SODIUM TABLETS USP 3MG [Suspect]
     Active Substance: WARFARIN SODIUM
     Dosage: 3 MG, 6X/WEEK
     Route: 048
     Dates: start: 201405
  4. TAMSULOSIN [Concomitant]
     Active Substance: TAMSULOSIN
     Dosage: 0.8 MG, 1X/DAY
     Dates: end: 201406

REACTIONS (6)
  - Diarrhoea [Not Recovered/Not Resolved]
  - Drug dose omission [Recovered/Resolved]
  - Contusion [Not Recovered/Not Resolved]
  - Dyspepsia [Not Recovered/Not Resolved]
  - Drug interaction [Unknown]
  - Faeces soft [None]

NARRATIVE: CASE EVENT DATE: 2014
